FAERS Safety Report 17051249 (Version 4)
Quarter: 2021Q1

REPORT INFORMATION
  Report Type: Spontaneous
  Country: FR (occurrence: FR)
  Receive Date: 20191120
  Receipt Date: 20210226
  Transmission Date: 20210419
  Serious: Yes (Other)
  Sender: FDA-Public Use
  Company Number: FR-AUROBINDO-AUR-APL-2019-072983

PATIENT
  Age: 21 Year
  Sex: Male

DRUGS (22)
  1. INTERFERON GAMMA NOS [Suspect]
     Active Substance: INTERFERON GAMMA
     Indication: ASPERGILLUS INFECTION
  2. POSACONAZOLE [Suspect]
     Active Substance: POSACONAZOLE
     Indication: CEREBRAL ASPERGILLOSIS
  3. AMPHOTERICIN B, LIPOSOME [Concomitant]
     Active Substance: AMPHOTERICIN B
     Indication: CEREBRAL ASPERGILLOSIS
  4. VORICONAZOLE. [Suspect]
     Active Substance: VORICONAZOLE
     Indication: BRONCHOPULMONARY ASPERGILLOSIS
     Dosage: UNK
     Route: 065
  5. AMPHOTERICIN B LIPID COMPLEX [Suspect]
     Active Substance: AMPHOTERICIN B
     Indication: BRONCHOPULMONARY ASPERGILLOSIS
     Dosage: UNK
     Route: 065
  6. INTERFERON GAMMA NOS [Suspect]
     Active Substance: INTERFERON GAMMA
     Indication: CEREBRAL ASPERGILLOSIS
  7. VORICONAZOLE. [Suspect]
     Active Substance: VORICONAZOLE
     Indication: CEREBRAL ASPERGILLOSIS
  8. POSACONAZOLE [Suspect]
     Active Substance: POSACONAZOLE
     Indication: BRONCHOPULMONARY ASPERGILLOSIS
     Dosage: UNK
     Route: 065
  9. ISAVUCONAZOLE [Concomitant]
     Active Substance: ISAVUCONAZOLE
     Indication: ANTIFUNGAL TREATMENT
     Dosage: 200 MG, QD
     Route: 048
  10. AMPHOTERICIN B LIPID COMPLEX [Suspect]
     Active Substance: AMPHOTERICIN B
     Indication: ASPERGILLUS INFECTION
  11. CASPOFUNGIN [Suspect]
     Active Substance: CASPOFUNGIN
     Indication: CHRONIC GRANULOMATOUS DISEASE
  12. INTERFERON GAMMA NOS [Suspect]
     Active Substance: INTERFERON GAMMA
     Indication: BRONCHOPULMONARY ASPERGILLOSIS
     Dosage: UNK
     Route: 065
  13. INTERFERON GAMMA NOS [Suspect]
     Active Substance: INTERFERON GAMMA
     Indication: CHRONIC GRANULOMATOUS DISEASE
  14. POSACONAZOLE [Suspect]
     Active Substance: POSACONAZOLE
     Indication: CHRONIC GRANULOMATOUS DISEASE
  15. VORICONAZOLE. [Suspect]
     Active Substance: VORICONAZOLE
     Indication: CHRONIC GRANULOMATOUS DISEASE
  16. CASPOFUNGIN [Suspect]
     Active Substance: CASPOFUNGIN
     Indication: CEREBRAL ASPERGILLOSIS
  17. POSACONAZOLE [Suspect]
     Active Substance: POSACONAZOLE
     Indication: ASPERGILLUS INFECTION
  18. VORICONAZOLE. [Suspect]
     Active Substance: VORICONAZOLE
     Indication: ASPERGILLUS INFECTION
  19. AMPHOTERICIN B LIPID COMPLEX [Suspect]
     Active Substance: AMPHOTERICIN B
     Indication: CHRONIC GRANULOMATOUS DISEASE
  20. AMPHOTERICIN B LIPID COMPLEX [Suspect]
     Active Substance: AMPHOTERICIN B
     Indication: CEREBRAL ASPERGILLOSIS
  21. CASPOFUNGIN [Suspect]
     Active Substance: CASPOFUNGIN
     Indication: BRONCHOPULMONARY ASPERGILLOSIS
     Dosage: UNK
     Route: 065
  22. AMPHOTERICIN B, LIPOSOME [Concomitant]
     Active Substance: AMPHOTERICIN B
     Indication: BRONCHOPULMONARY ASPERGILLOSIS
     Dosage: UNK
     Route: 065

REACTIONS (3)
  - Photosensitivity reaction [Unknown]
  - Drug ineffective [Unknown]
  - Therapy non-responder [Recovered/Resolved]
